FAERS Safety Report 15677386 (Version 1)
Quarter: 2018Q4

REPORT INFORMATION
  Report Type: Spontaneous
  Country: US (occurrence: US)
  Receive Date: 20181130
  Receipt Date: 20181130
  Transmission Date: 20190205
  Serious: No
  Sender: FDA-Public Use
  Company Number: US-SA-2018SA169692

PATIENT
  Sex: Female

DRUGS (5)
  1. DULCOLAX (BISACODYL) [Suspect]
     Active Substance: BISACODYL
     Dosage: 3 DF
  2. DULCOLAX (BISACODYL) [Suspect]
     Active Substance: BISACODYL
     Indication: PRODUCT USED FOR UNKNOWN INDICATION
     Dosage: 3 DF
  3. DULCOLAX (BISACODYL) [Suspect]
     Active Substance: BISACODYL
     Dosage: 6 DF
  4. MIRALAX [Concomitant]
     Active Substance: POLYETHYLENE GLYCOL 3350
     Indication: PRODUCT USED FOR UNKNOWN INDICATION
  5. DULCOLAX (BISACODYL) [Suspect]
     Active Substance: BISACODYL
     Dosage: 6 DF

REACTIONS (4)
  - Musculoskeletal discomfort [Unknown]
  - Drug ineffective [Unknown]
  - Flatulence [Unknown]
  - Product use issue [Unknown]
